FAERS Safety Report 8010159-5 (Version None)
Quarter: 2011Q4

REPORT INFORMATION
  Report Type: 
  Country: None (occurrence: None)
  Receive Date: 20111123
  Receipt Date: 20110726
  Transmission Date: 20120403
  Serious: No
  Sender: FDA-Public Use
  Company Number: 334365

PATIENT
  Age: 51 Year
  Sex: Female

DRUGS (1)
  1. VICTOZA [Suspect]
     Indication: TYPE 2 DIABETES MELLITUS
     Dosage: SUBCUTANEOUS
     Route: 058

REACTIONS (8)
  - WEIGHT DECREASED [None]
  - DYSPEPSIA [None]
  - DIARRHOEA [None]
  - ABNORMAL SENSATION IN EYE [None]
  - NAUSEA [None]
  - DECREASED APPETITE [None]
  - HEADACHE [None]
  - EAR DISCOMFORT [None]
